FAERS Safety Report 9747596 (Version 1)
Quarter: 2013Q4

REPORT INFORMATION
  Report Type: Spontaneous
  Country: US (occurrence: None)
  Receive Date: 20131205
  Receipt Date: 20131205
  Transmission Date: 20140711
  Serious: Yes (Other)
  Sender: FDA-Public Use
  Company Number: DAV-AE-GLY-13-01

PATIENT
  Age: 73 Year
  Sex: Male

DRUGS (5)
  1. GLYBURIDE [Suspect]
     Route: 048
  2. LOSARTAN [Concomitant]
  3. METFORMIN [Concomitant]
  4. SIMVASTATIN [Concomitant]
  5. ASPIRIN [Concomitant]

REACTIONS (1)
  - Hypersensitivity vasculitis [None]
